FAERS Safety Report 11447053 (Version 1)
Quarter: 2015Q3

REPORT INFORMATION
  Report Type: Spontaneous
  Country: US (occurrence: US)
  Receive Date: 20150831
  Receipt Date: 20150831
  Transmission Date: 20151125
  Serious: No
  Sender: FDA-Public Use
  Company Number: US-ELI_LILLY_AND_COMPANY-US200902002152

PATIENT
  Age: 38 Year
  Sex: Male

DRUGS (1)
  1. CYMBALTA [Suspect]
     Active Substance: DULOXETINE HYDROCHLORIDE
     Indication: PAIN
     Dosage: 30 MG, 2/D

REACTIONS (6)
  - Adverse drug reaction [Recovered/Resolved]
  - Hypersomnia [Recovered/Resolved]
  - Drug withdrawal syndrome [Not Recovered/Not Resolved]
  - Feeling abnormal [Recovered/Resolved]
  - Tremor [Not Recovered/Not Resolved]
  - Paraesthesia [Not Recovered/Not Resolved]
